FAERS Safety Report 19105570 (Version 3)
Quarter: 2021Q3

REPORT INFORMATION
  Report Type: Report from Study
  Country: US (occurrence: US)
  Receive Date: 20210407
  Receipt Date: 20210701
  Transmission Date: 20211014
  Serious: Yes (Other)
  Sender: FDA-Public Use
  Company Number: US-TAKEDA-US202030741

PATIENT
  Age: 69 Year
  Sex: Female

DRUGS (2)
  1. CUVITRU [Suspect]
     Active Substance: HUMAN IMMUNOGLOBULIN G
     Indication: PRIMARY IMMUNODEFICIENCY SYNDROME
     Dosage: 17 GRAM, 1X/WEEK
     Route: 065
  2. CUVITRU [Suspect]
     Active Substance: HUMAN IMMUNOGLOBULIN G
     Dosage: 23 GRAM, 1/WEEK
     Route: 065

REACTIONS (12)
  - Immunoglobulins decreased [Unknown]
  - Arthritis [Unknown]
  - Renal cyst [Unknown]
  - Asthma [Recovering/Resolving]
  - Weight decreased [Unknown]
  - Gout [Unknown]
  - Mass [Unknown]
  - Mast cell activation syndrome [Unknown]
  - Renal disorder [Unknown]
  - Arthritis infective [Unknown]
  - Pain in extremity [Unknown]
  - Pain [Unknown]

NARRATIVE: CASE EVENT DATE: 20210226
